FAERS Safety Report 25614108 (Version 6)
Quarter: 2025Q4

REPORT INFORMATION
  Report Type: Report from Study
  Country: US (occurrence: US)
  Receive Date: 20250728
  Receipt Date: 20251112
  Transmission Date: 20260118
  Serious: Yes (Other)
  Sender: MALLINCKRODT
  Company Number: US-MALLINCKRODT-MNK202504387

PATIENT
  Age: 59 Year
  Sex: Female

DRUGS (4)
  1. CORTICOTROPIN [Suspect]
     Active Substance: CORTICOTROPIN
     Indication: Pulmonary sarcoidosis
     Dosage: 80 UNITS
     Route: 058
     Dates: start: 20250706, end: 20250920
  2. LISINOPRIL [Concomitant]
     Active Substance: LISINOPRIL
     Dosage: UNKNOWN
  3. PREDNISONE [Concomitant]
     Active Substance: PREDNISONE
     Dosage: UNKNOWN
  4. PREDNISONE [Concomitant]
     Active Substance: PREDNISONE
     Dates: start: 202508

REACTIONS (10)
  - Renal impairment [Recovered/Resolved]
  - Arthropathy [Not Recovered/Not Resolved]
  - Discharge [Unknown]
  - Skin mass [Not Recovered/Not Resolved]
  - Stress [Unknown]
  - Swelling [Recovering/Resolving]
  - Fluid retention [Unknown]
  - Blood glucose increased [Unknown]
  - Peripheral swelling [Unknown]
  - Product dose omission issue [Unknown]

NARRATIVE: CASE EVENT DATE: 20250101
